FAERS Safety Report 18713199 (Version 1)
Quarter: 2021Q1

REPORT INFORMATION
  Report Type: Spontaneous
  Country: US (occurrence: US)
  Receive Date: 20210107
  Receipt Date: 20210107
  Transmission Date: 20210419
  Serious: No
  Sender: FDA-Public Use
  Company Number: US-CLARUS THERAPEUTICS, INC.-2020-JATENZO-000014

PATIENT

DRUGS (1)
  1. JATENZO [Suspect]
     Active Substance: TESTOSTERONE UNDECANOATE
     Indication: PRODUCT USED FOR UNKNOWN INDICATION
     Dosage: 237 MILLIGRAM
     Route: 048

REACTIONS (4)
  - Abdominal pain [Recovered/Resolved]
  - Drug hypersensitivity [Recovered/Resolved]
  - Swelling [Recovered/Resolved]
  - Gastrointestinal disorder [Recovered/Resolved]
